FAERS Safety Report 16662183 (Version 1)
Quarter: 2019Q3

REPORT INFORMATION
  Report Type: Report from Study
  Country: US (occurrence: US)
  Receive Date: 20190802
  Receipt Date: 20190802
  Transmission Date: 20191004
  Serious: No
  Sender: FDA-Public Use
  Company Number: US-EXELIXIS-CABO-19019557

PATIENT
  Age: 60 Year
  Sex: Male

DRUGS (1)
  1. CABOMETYX [Suspect]
     Active Substance: CABOZANTINIB S-MALATE
     Indication: BASAL CELL CARCINOMA
     Dosage: 40 MG, QD WITHOUT FOOD
     Dates: start: 20190305

REACTIONS (12)
  - Oral pain [Unknown]
  - Off label use [Unknown]
  - Gingival pain [Not Recovered/Not Resolved]
  - Taste disorder [Unknown]
  - Pruritus [Recovering/Resolving]
  - Fatigue [Unknown]
  - Gastrointestinal motility disorder [Unknown]
  - Blood pressure increased [Not Recovered/Not Resolved]
  - Decreased appetite [Unknown]
  - Blood lactate dehydrogenase increased [Unknown]
  - Muscle spasms [Not Recovered/Not Resolved]
  - Nausea [Not Recovered/Not Resolved]

NARRATIVE: CASE EVENT DATE: 201903
